FAERS Safety Report 7183187-X (Version None)
Quarter: 2010Q4

REPORT INFORMATION
  Report Type: 
  Country: None (occurrence: None)
  Receive Date: 20101222
  Receipt Date: 20101125
  Transmission Date: 20110411
  Serious: Yes (Hospitalization)
  Sender: FDA-Public Use
  Company Number: SE-AMGEN-SWECT2010007881

PATIENT

DRUGS (2)
  1. ETANERCEPT [Suspect]
     Indication: RHEUMATOID ARTHRITIS
     Dosage: UNK
     Dates: start: 20090312, end: 20100330
  2. NSAID'S [Concomitant]
     Dosage: UNK
     Dates: start: 20091209

REACTIONS (1)
  - LUNG ADENOCARCINOMA [None]
